FAERS Safety Report 7267888-0 (Version None)
Quarter: 2011Q1

REPORT INFORMATION
  Report Type: 
  Country: None (occurrence: None)
  Receive Date: 20110201
  Receipt Date: 20110124
  Transmission Date: 20110831
  Serious: Yes (Other)
  Sender: FDA-Public Use
  Company Number: US-ROCHE-756152

PATIENT
  Sex: Female
  Weight: 80.7 kg

DRUGS (12)
  1. KLONOPIN [Concomitant]
  2. PROTONIX [Concomitant]
  3. PEGASYS [Suspect]
     Indication: HEPATITIS C
     Dosage: 42 WEEKS,
     Route: 058
     Dates: start: 20100301
  4. CORTEF [Concomitant]
     Dosage: DRUG NAME: CLORTEF
  5. REBETOL [Suspect]
     Indication: HEPATITIS C
     Dosage: MORNING AND EVENING
     Route: 048
     Dates: start: 20100301
  6. GABAPENTIN [Concomitant]
  7. SINGULAIR [Concomitant]
  8. SAVELLA [Concomitant]
  9. HYDROXYZINE [Concomitant]
  10. LORATADINE [Concomitant]
  11. PROAIR HFA [Concomitant]
  12. SYMBICORT [Concomitant]
     Dosage: DRUG NAME: SYMBICORT

REACTIONS (2)
  - ACNE [None]
  - LIPOMA [None]
